FAERS Safety Report 8496309-5 (Version None)
Quarter: 2012Q3

REPORT INFORMATION
  Report Type: 
  Country: None (occurrence: None)
  Receive Date: 20120709
  Receipt Date: 20120702
  Transmission Date: 20120928
  Serious: Yes (Death, Other)
  Sender: FDA-Public Use
  Company Number: US-BAYER-200940379NA

PATIENT
  Age: 73 Year
  Sex: Male
  Weight: 68.027 kg

DRUGS (30)
  1. OMEPRAZOLE [Concomitant]
  2. FORANE [Concomitant]
     Dosage: UNK
     Dates: start: 20051031
  3. VANCOMYCIN [Concomitant]
     Dosage: 1 G, UNK
     Route: 042
     Dates: start: 20051031
  4. HEPARIN [Concomitant]
     Dosage: 41000 U, UNK
     Dates: start: 20051031, end: 20051031
  5. RED BLOOD CELLS [Concomitant]
     Dosage: 3 U, UNK
     Route: 042
  6. DOBUTREX [Concomitant]
  7. AMICAR [Concomitant]
     Dosage: 10 G, PUMP PRIME
     Dates: start: 20051031
  8. LISINOPRIL [Concomitant]
  9. PAVULON [Concomitant]
     Dosage: 10 MG, UNK
     Route: 042
     Dates: start: 20051031
  10. LASIX [Concomitant]
     Dosage: 40 MG, UNK
     Route: 042
     Dates: start: 20051031
  11. SOLU-MEDROL [Concomitant]
     Dosage: 25 G, UNK
     Dates: start: 20051031, end: 20051031
  12. AMICAR [Concomitant]
     Dosage: 10 G, UNK
     Route: 042
     Dates: start: 20051031
  13. PROTAMINE SULFATE [Concomitant]
     Dosage: 250 MG, UNK
     Route: 042
     Dates: start: 20051031
  14. MANNITOL [Concomitant]
     Dosage: 250 ML, UNK
     Route: 042
     Dates: start: 20051031, end: 20051031
  15. IMDUR [Concomitant]
     Dosage: 30 MG, UNK
     Route: 048
  16. LABETALOL HCL [Concomitant]
  17. DIPYRIDAMOLE [Concomitant]
  18. VALIUM [Concomitant]
  19. TRASYLOL [Suspect]
     Indication: CORONARY ARTERY BYPASS
     Route: 042
     Dates: start: 20051031
  20. LIDOCAINE [Concomitant]
     Dosage: 100 MG, UNK
     Route: 042
     Dates: start: 20051031
  21. ADALAT CC [Concomitant]
  22. ASPIRIN [Concomitant]
  23. HYDRODIURIL [Concomitant]
  24. PROPOFOL [Concomitant]
     Dosage: 150 MG, UNK
     Route: 042
     Dates: start: 20051031
  25. SUFENTANIL CITRATE [Concomitant]
     Dosage: 125 MG, UNK
     Route: 042
     Dates: start: 20051031
  26. VERSED [Concomitant]
     Dosage: 5 MG, UNK
     Route: 042
     Dates: start: 20051031
  27. ETOMIDATE [Concomitant]
  28. DOBUTAMINE HCL [Concomitant]
     Dosage: UNK
     Route: 042
     Dates: start: 20051031
  29. EPINEPHRINE [Concomitant]
     Dosage: UNK
     Route: 042
     Dates: start: 20051031
  30. ISOLYTE [Concomitant]
     Dosage: 1400 ML, UNK
     Dates: start: 20051031, end: 20051031

REACTIONS (13)
  - MULTI-ORGAN FAILURE [None]
  - ANXIETY [None]
  - ANHEDONIA [None]
  - FEAR [None]
  - UNEVALUABLE EVENT [None]
  - RENAL FAILURE [None]
  - STRESS [None]
  - INJURY [None]
  - DEATH [None]
  - RENAL INJURY [None]
  - PAIN [None]
  - RENAL IMPAIRMENT [None]
  - EMOTIONAL DISTRESS [None]
